FAERS Safety Report 18962629 (Version 2)
Quarter: 2021Q2

REPORT INFORMATION
  Report Type: Spontaneous
  Country: US (occurrence: US)
  Receive Date: 20210303
  Receipt Date: 20210402
  Transmission Date: 20210717
  Serious: Yes (Other)
  Sender: FDA-Public Use
  Company Number: US-GLAXOSMITHKLINE-US2021055909

PATIENT
  Age: 62 Year
  Sex: Female

DRUGS (1)
  1. FLUTICASONE PROPIONATE+SALMETEROL XINAFOATE [Suspect]
     Active Substance: FLUTICASONE PROPIONATE\SALMETEROL XINAFOATE
     Indication: PRODUCT USED FOR UNKNOWN INDICATION
     Dosage: UNK 250/50 MCG

REACTIONS (7)
  - Product complaint [Unknown]
  - Nasopharyngitis [Unknown]
  - Foreign body in throat [Unknown]
  - Dysgeusia [Recovered/Resolved]
  - Aphonia [Unknown]
  - Incorrect dose administered [Unknown]
  - Product residue present [Unknown]

NARRATIVE: CASE EVENT DATE: 20210301
